FAERS Safety Report 25634206 (Version 3)
Quarter: 2025Q4

REPORT INFORMATION
  Report Type: Spontaneous
  Country: EU (occurrence: EU)
  Receive Date: 20250801
  Receipt Date: 20251211
  Transmission Date: 20260118
  Serious: Yes (Other)
  Sender: TEVA
  Company Number: EU-TEVA-VS-3356244

PATIENT
  Age: 28 Year
  Sex: Female

DRUGS (4)
  1. AJOVY [Suspect]
     Active Substance: FREMANEZUMAB-VFRM
     Indication: Migraine
     Dosage: LAST ADMINISTERED DOS: 2025-08
     Route: 058
     Dates: start: 202505
  2. LISDEXAMFETAMINE DIMESYLATE [Suspect]
     Active Substance: LISDEXAMFETAMINE DIMESYLATE
     Indication: Attention deficit hyperactivity disorder
     Dosage: 20MG, 1-0-0
     Route: 065
     Dates: end: 20250617
  3. DIETARY SUPPLEMENT [Concomitant]
     Active Substance: DIETARY SUPPLEMENT
     Indication: Product used for unknown indication
  4. LEVOTHYROXINE SODIUM [Concomitant]
     Active Substance: LEVOTHYROXINE SODIUM
     Indication: Hypothyroidism
     Dosage: 50UG 1-0-0

REACTIONS (13)
  - Pain in extremity [Recovered/Resolved]
  - Visual impairment [Recovered/Resolved]
  - Wrong technique in product usage process [Unknown]
  - Injection site swelling [Recovering/Resolving]
  - Paraesthesia [Recovering/Resolving]
  - Spinal pain [Recovering/Resolving]
  - Chromatopsia [Recovered/Resolved]
  - Anisocoria [Unknown]
  - Pain in extremity [Recovered/Resolved]
  - Injection site haematoma [Unknown]
  - Scintillating scotoma [Recovered/Resolved]
  - Eye pain [Recovered/Resolved]
  - Electric shock sensation [Recovering/Resolving]

NARRATIVE: CASE EVENT DATE: 20250610
